FAERS Safety Report 25775079 (Version 1)
Quarter: 2025Q3

REPORT INFORMATION
  Report Type: Spontaneous
  Country: GB (occurrence: GB)
  Receive Date: 20250909
  Receipt Date: 20250909
  Transmission Date: 20251020
  Serious: Yes (Disabling)
  Sender: ELI LILLY AND COMPANY
  Company Number: None

PATIENT
  Age: 53 Year
  Sex: Male
  Weight: 86 kg

DRUGS (1)
  1. MOUNJARO [Suspect]
     Active Substance: TIRZEPATIDE
     Indication: Weight control
     Route: 065
     Dates: start: 20250808, end: 20250823

REACTIONS (7)
  - Weight decreased [Not Recovered/Not Resolved]
  - Nausea [Recovering/Resolving]
  - Vomiting [Recovered/Resolved]
  - Abdominal pain upper [Not Recovered/Not Resolved]
  - Eructation [Not Recovered/Not Resolved]
  - Diarrhoea [Recovering/Resolving]
  - Fatigue [Not Recovered/Not Resolved]

NARRATIVE: CASE EVENT DATE: 20250823
